FAERS Safety Report 6969075-X (Version None)
Quarter: 2010Q3

REPORT INFORMATION
  Report Type: 
  Country: None (occurrence: None)
  Receive Date: 20100907
  Receipt Date: 20100824
  Transmission Date: 20110219
  Serious: Yes (Hospitalization)
  Sender: FDA-Public Use
  Company Number: BR-MYLANLABS-2010S1015479

PATIENT
  Age: 32 Year
  Sex: Male

DRUGS (1)
  1. KETOROLAC TROMETHAMINE [Suspect]
     Indication: ANALGESIC THERAPY
     Dosage: FOUR SUBLINGUAL TABLETS WITHIN 24 HOURS (10MG)
     Route: 060

REACTIONS (1)
  - PULMONARY HAEMORRHAGE [None]
